FAERS Safety Report 7199488-5 (Version None)
Quarter: 2010Q4

REPORT INFORMATION
  Report Type: 
  Country: None (occurrence: None)
  Receive Date: 20101228
  Receipt Date: 20101216
  Transmission Date: 20110411
  Serious: Yes (Other)
  Sender: FDA-Public Use
  Company Number: ES-ELI_LILLY_AND_COMPANY-ES201012004223

PATIENT
  Sex: Male
  Weight: 67 kg

DRUGS (8)
  1. FORTEO [Suspect]
     Indication: FRACTURE
     Dosage: 20 UG, DAILY (1/D)
     Route: 058
     Dates: start: 20090726
  2. COROPRES [Concomitant]
     Dosage: 25 MG, 2/D
     Route: 048
  3. ENALAPRIL MALEATE [Concomitant]
     Dosage: 5 MG, DAILY (1/D)
     Route: 048
  4. RANITIDINA [Concomitant]
     Dosage: 150 MG, DAILY (1/D)
     Route: 048
  5. PLETAL [Concomitant]
     Dosage: 100 MG, DAILY (1/D)
     Route: 048
  6. PLAVIX [Concomitant]
     Dosage: 75 MG, DAILY (1/D)
     Route: 048
  7. ADIRO [Concomitant]
     Dosage: 100 MG, DAILY (1/D)
     Route: 048
  8. EFFERALGAN                         /00020001/ [Concomitant]
     Indication: PAIN
     Dosage: 1 G, EVERY 8 HRS
     Route: 048

REACTIONS (3)
  - OFF LABEL USE [None]
  - OSTEOMYELITIS [None]
  - POSTOPERATIVE WOUND INFECTION [None]
